FAERS Safety Report 18759298 (Version 13)
Quarter: 2021Q4

REPORT INFORMATION
  Report Type: Spontaneous
  Country: CZ (occurrence: CZ)
  Receive Date: 20210120
  Receipt Date: 20211216
  Transmission Date: 20220303
  Serious: Yes (Hospitalization, Other)
  Sender: FDA-Public Use
  Company Number: CZ-MYLANLABS-2021M1001106

PATIENT
  Age: 45 Year
  Sex: Male

DRUGS (32)
  1. LAMOTRIGINE [Suspect]
     Active Substance: LAMOTRIGINE
     Indication: Drug therapy
     Dosage: 400 MILLIGRAM, ONCE A DAY (400 MILLIGRAM, DAILY, 400 MG, QD)
     Route: 065
  2. LAMOTRIGINE [Suspect]
     Active Substance: LAMOTRIGINE
     Indication: Seizure
     Dosage: UNK
     Route: 065
  3. LAMOTRIGINE [Suspect]
     Active Substance: LAMOTRIGINE
     Indication: Psychogenic seizure
  4. LAMOTRIGINE [Suspect]
     Active Substance: LAMOTRIGINE
     Indication: Epilepsy
  5. LAMOTRIGINE [Suspect]
     Active Substance: LAMOTRIGINE
     Indication: Depression
  6. LEVETIRACETAM [Suspect]
     Active Substance: LEVETIRACETAM
     Indication: Epilepsy
     Dosage: UNK
     Route: 065
  7. LEVETIRACETAM [Suspect]
     Active Substance: LEVETIRACETAM
     Indication: Psychogenic seizure
  8. LEVETIRACETAM [Suspect]
     Active Substance: LEVETIRACETAM
     Indication: Seizure
  9. LEVETIRACETAM [Suspect]
     Active Substance: LEVETIRACETAM
     Indication: Depression
  10. CARBAMAZEPINE [Suspect]
     Active Substance: CARBAMAZEPINE
     Indication: Erectile dysfunction
     Dosage: UNK
     Route: 065
  11. CARBAMAZEPINE [Suspect]
     Active Substance: CARBAMAZEPINE
     Indication: Epilepsy
  12. CARBAMAZEPINE [Suspect]
     Active Substance: CARBAMAZEPINE
     Indication: Psychogenic seizure
  13. CARBAMAZEPINE [Suspect]
     Active Substance: CARBAMAZEPINE
     Indication: Seizure
  14. ESLICARBAZEPINE [Suspect]
     Active Substance: ESLICARBAZEPINE
     Indication: Epilepsy
     Dosage: UNK
     Route: 065
  15. ESLICARBAZEPINE [Suspect]
     Active Substance: ESLICARBAZEPINE
     Indication: Psychogenic seizure
  16. ESLICARBAZEPINE [Suspect]
     Active Substance: ESLICARBAZEPINE
     Indication: Seizure
  17. TOPIRAMATE [Suspect]
     Active Substance: TOPIRAMATE
     Indication: Epilepsy
     Dosage: 200 MILLIGRAM, ONCE A DAY (200 MG, QD)
     Route: 048
  18. TOPIRAMATE [Suspect]
     Active Substance: TOPIRAMATE
     Indication: Drug therapy
  19. TOPIRAMATE [Suspect]
     Active Substance: TOPIRAMATE
     Indication: Psychogenic seizure
  20. TOPIRAMATE [Suspect]
     Active Substance: TOPIRAMATE
     Indication: Epilepsy
  21. TOPIRAMATE [Suspect]
     Active Substance: TOPIRAMATE
     Indication: Seizure
  22. TOPIRAMATE [Suspect]
     Active Substance: TOPIRAMATE
     Indication: Depression
  23. VALPROATE [Suspect]
     Active Substance: VALPROIC ACID
     Indication: Weight increased
     Dosage: UNK
     Route: 065
  24. VALPROATE [Suspect]
     Active Substance: VALPROIC ACID
     Indication: Epilepsy
  25. VALPROATE [Suspect]
     Active Substance: VALPROIC ACID
     Indication: Psychogenic seizure
  26. VALPROATE [Suspect]
     Active Substance: VALPROIC ACID
     Indication: Seizure
  27. VALPROATE [Suspect]
     Active Substance: VALPROIC ACID
     Indication: Epilepsy
  28. VALPROATE [Suspect]
     Active Substance: VALPROIC ACID
     Indication: Depression
  29. VALPROATE [Suspect]
     Active Substance: VALPROIC ACID
     Indication: Seizure
  30. BRIVARACETAM [Concomitant]
     Active Substance: BRIVARACETAM
     Indication: Epilepsy
     Dosage: 50 MILLIGRAM, ONCE A DAY 25 MILLIGRAM, 2X/DAY (BID), 25-0-25 MG)
     Route: 065
  31. BRIVARACETAM [Concomitant]
     Active Substance: BRIVARACETAM
     Indication: Psychogenic seizure
     Dosage: 100 MILLIGRAM, ONCE A DAY (100 MILLIGRAM, ONCE DAILY (QD), 50 MG, BID)
     Route: 065
  32. BRIVARACETAM [Concomitant]
     Active Substance: BRIVARACETAM
     Indication: Seizure
     Dosage: 25 MILLIGRAM, TWO TIMES A DAY(25 MILLIGRAM, 2X/DAY (BID) )
     Route: 065

REACTIONS (17)
  - Seizure [Not Recovered/Not Resolved]
  - Condition aggravated [Recovered/Resolved]
  - Psychogenic seizure [Recovered/Resolved]
  - Erectile dysfunction [Recovered/Resolved]
  - Weight increased [Unknown]
  - Thinking abnormal [Recovering/Resolving]
  - Psychiatric symptom [Unknown]
  - Mental disorder [Recovered/Resolved]
  - Drug intolerance [Unknown]
  - Drug ineffective for unapproved indication [Unknown]
  - Off label use [Unknown]
  - Epilepsy [Unknown]
  - Mental impairment [Unknown]
  - Therapeutic product effect decreased [Unknown]
  - Product use in unapproved indication [Unknown]
  - Drug ineffective [Unknown]
  - Therapeutic product effect incomplete [Unknown]
